FAERS Safety Report 18998480 (Version 1)
Quarter: 2021Q1

REPORT INFORMATION
  Report Type: Spontaneous
  Country: ES (occurrence: ES)
  Receive Date: 20210312
  Receipt Date: 20210312
  Transmission Date: 20210420
  Serious: Yes (Death, Other)
  Sender: FDA-Public Use
  Company Number: ES-AUROBINDO-AUR-APL-2019-071905

PATIENT
  Age: 3 Month

DRUGS (6)
  1. MILRINONE [Suspect]
     Active Substance: MILRINONE
     Indication: PULMONARY HYPERTENSION
     Dosage: 0.75 MILLIGRAM/KILOGRAM, PER MIN
     Route: 065
  2. NITRIC OXIDE. [Suspect]
     Active Substance: NITRIC OXIDE
     Indication: PULMONARY HYPERTENSION
     Dosage: 20 PARTS PER MILLION (PPM)
     Route: 055
  3. SILDENAFIL. [Suspect]
     Active Substance: SILDENAFIL
     Indication: PULMONARY HYPERTENSION
     Dosage: 2 MILLIGRAM/KILOGRAM, ONCE A DAY
     Route: 065
  4. EPOPROSTENOL SODIUM. [Suspect]
     Active Substance: EPOPROSTENOL SODIUM
     Indication: PULMONARY HYPERTENSION
     Dosage: 2 NANOGRAM PER KILOGRAM, PER MIN
     Route: 042
  5. EPOPROSTENOL SODIUM. [Suspect]
     Active Substance: EPOPROSTENOL SODIUM
     Dosage: 10 NANOGRAM PER KILOGRAM, PER MIN IN 2 WEEKS
     Route: 042
  6. BOSENTAN FILM COATED TABLETS [Suspect]
     Active Substance: BOSENTAN
     Indication: PULMONARY HYPERTENSION
     Dosage: 1 MILLIGRAM/KILOGRAM, TWO TIMES A DAY (2 MG/KG, ONCE DAILY)
     Route: 048

REACTIONS (7)
  - Tricuspid valve incompetence [Unknown]
  - Drug effective for unapproved indication [Unknown]
  - Hypotension [Unknown]
  - Gastroenteritis [Fatal]
  - Therapeutic product effect incomplete [Unknown]
  - Off label use [Unknown]
  - Hypovolaemic shock [Fatal]
